FAERS Safety Report 24768765 (Version 1)
Quarter: 2024Q4

REPORT INFORMATION
  Report Type: Spontaneous
  Country: US (occurrence: US)
  Receive Date: 20241224
  Receipt Date: 20241224
  Transmission Date: 20250114
  Serious: No
  Sender: MERCK
  Company Number: US-009507513-2412USA006380

PATIENT
  Age: 58 Year
  Sex: Female

DRUGS (1)
  1. VERQUVO [Suspect]
     Active Substance: VERICIGUAT
     Indication: Pulmonary arterial hypertension
     Dosage: UNKNOWN
     Route: 048
     Dates: start: 2023

REACTIONS (1)
  - Off label use [Unknown]

NARRATIVE: CASE EVENT DATE: 20230101
